FAERS Safety Report 4672411-0 (Version None)
Quarter: 2005Q2

REPORT INFORMATION
  Report Type: 
  Country: None (occurrence: None)
  Receive Date: 20050524
  Receipt Date: 20020509
  Transmission Date: 20051028
  Serious: Yes (Hospitalization)
  Sender: FDA-Public Use
  Company Number: PHHO2002JP03831

PATIENT
  Age: 61 Year
  Sex: Male
  Weight: 62 kg

DRUGS (4)
  1. GLEEVEC [Suspect]
     Indication: GASTROINTESTINAL STROMAL TUMOUR
     Dosage: 400 MG, QD
     Route: 048
     Dates: start: 20020522
  2. GLEEVEC [Suspect]
     Dosage: NO TREATMENT
     Dates: start: 20020508, end: 20020521
  3. GLEEVEC [Suspect]
     Dosage: 400 MG, QD
     Route: 048
     Dates: start: 20020423, end: 20020507
  4. ADALAT [Concomitant]

REACTIONS (9)
  - ABDOMINAL DISTENSION [None]
  - ANAEMIA [None]
  - ANOREXIA [None]
  - CEREBROVASCULAR ACCIDENT [None]
  - CONCOMITANT DISEASE PROGRESSION [None]
  - HAEMOGLOBIN DECREASED [None]
  - INTRA-ABDOMINAL HAEMORRHAGE [None]
  - MALAISE [None]
  - OEDEMA PERIPHERAL [None]
